FAERS Safety Report 5480241-5 (Version None)
Quarter: 2007Q4

REPORT INFORMATION
  Report Type: 
  Country: None (occurrence: None)
  Receive Date: 20071003
  Receipt Date: 20070918
  Transmission Date: 20080405
  Serious: Yes (Other)
  Sender: FDA-Public Use
  Company Number: PAR_01743_2007

PATIENT
  Age: 24 Year
  Sex: Female

DRUGS (1)
  1. IBUPROFEN [Suspect]
     Indication: DRUG USE FOR UNKNOWN INDICATION
     Dosage: (DF)

REACTIONS (4)
  - ACUTE RESPIRATORY FAILURE [None]
  - ALVEOLITIS [None]
  - EOSINOPHILIA [None]
  - INTERSTITIAL LUNG DISEASE [None]
